FAERS Safety Report 8494198-6 (Version None)
Quarter: 2012Q3

REPORT INFORMATION
  Report Type: 
  Country: None (occurrence: None)
  Receive Date: 20120709
  Receipt Date: 20120705
  Transmission Date: 20120928
  Serious: Yes (Other)
  Sender: FDA-Public Use
  Company Number: PHHY2012AR057970

PATIENT
  Sex: Female

DRUGS (1)
  1. TRILEPTAL [Suspect]
     Indication: DIZZINESS
     Dosage: 300 MG, QD
     Route: 048
     Dates: start: 20120101

REACTIONS (4)
  - OSTEOPOROSIS [None]
  - SNEEZING [None]
  - INFLUENZA [None]
  - COUGH [None]
